FAERS Safety Report 12088976 (Version 1)
Quarter: 2016Q1

REPORT INFORMATION
  Report Type: Spontaneous
  Country: JP (occurrence: JP)
  Receive Date: 20160218
  Receipt Date: 20160218
  Transmission Date: 20160526
  Serious: Yes (Hospitalization, Disabling, Other)
  Sender: FDA-Public Use
  Company Number: PHHY2014JP109878

PATIENT
  Age: 56 Year
  Sex: Male
  Weight: 55 kg

DRUGS (8)
  1. LIPITOR [Concomitant]
     Active Substance: ATORVASTATIN CALCIUM
     Indication: PRODUCT USED FOR UNKNOWN INDICATION
     Dosage: 10 MG, QD
     Route: 048
     Dates: start: 20121212, end: 20140104
  2. CELLCEPT [Concomitant]
     Active Substance: MYCOPHENOLATE MOFETIL\MYCOPHENOLATE MOFETIL HYDROCHLORIDE
     Indication: RENAL TRANSPLANT
     Dosage: 250 TO 500 MG, BID
     Route: 048
     Dates: start: 20110228, end: 20140104
  3. CERTICAN [Suspect]
     Active Substance: EVEROLIMUS
     Indication: RENAL TRANSPLANT
     Dosage: 0.5 MG, BID
     Route: 048
     Dates: start: 20120213, end: 20140104
  4. D ALFA [Concomitant]
     Active Substance: ALFACALCIDOL
     Indication: PRODUCT USED FOR UNKNOWN INDICATION
     Dosage: 0.25 MG, QD
     Route: 048
     Dates: start: 20110210
  5. ALLOPURINOL. [Concomitant]
     Active Substance: ALLOPURINOL
     Indication: PRODUCT USED FOR UNKNOWN INDICATION
     Dosage: 100 MG, QD
     Route: 048
     Dates: start: 20110210, end: 20140104
  6. MEDROL [Concomitant]
     Active Substance: METHYLPREDNISOLONE
     Indication: RENAL TRANSPLANT
     Dosage: 4 TO 30 MG, BID
     Route: 048
     Dates: start: 19920123, end: 20140104
  7. NEORAL [Suspect]
     Active Substance: CYCLOSPORINE
     Indication: RENAL TRANSPLANT
     Dosage: 10 TO 100 MG, BID
     Route: 048
     Dates: start: 20030626, end: 20131001
  8. FERROUS SULFATE [Concomitant]
     Active Substance: FERROUS SULFATE\FERROUS SULFATE, DRIED
     Indication: PRODUCT USED FOR UNKNOWN INDICATION
     Dosage: 105 MG, QD
     Route: 048
     Dates: start: 20121211, end: 20140104

REACTIONS (6)
  - Kidney fibrosis [Unknown]
  - Haematocrit decreased [Unknown]
  - Renal tubular atrophy [Unknown]
  - Haemoglobin decreased [Unknown]
  - Renal impairment [Not Recovered/Not Resolved]
  - Renal transplant failure [Not Recovered/Not Resolved]

NARRATIVE: CASE EVENT DATE: 20110207
